FAERS Safety Report 16032425 (Version 6)
Quarter: 2021Q4

REPORT INFORMATION
  Report Type: Report from Study
  Country: EC (occurrence: EC)
  Receive Date: 20190304
  Receipt Date: 20211124
  Transmission Date: 20220303
  Serious: Yes (Other)
  Sender: FDA-Public Use
  Company Number: PHHY2017EC192496

PATIENT
  Age: 43 Year
  Sex: Female
  Weight: 81 kg

DRUGS (13)
  1. SANDOSTATIN LAR DEPOT [Suspect]
     Active Substance: OCTREOTIDE ACETATE
     Indication: Acromegaly
     Dosage: 20 MG, QMO
     Route: 030
     Dates: start: 20170830, end: 20190107
  2. SANDOSTATIN LAR DEPOT [Suspect]
     Active Substance: OCTREOTIDE ACETATE
     Dosage: 20 MG, QMO
     Route: 030
     Dates: start: 20180619
  3. SANDOSTATIN LAR DEPOT [Suspect]
     Active Substance: OCTREOTIDE ACETATE
     Dosage: UNK
     Route: 065
     Dates: end: 20190107
  4. SANDOSTATIN LAR DEPOT [Suspect]
     Active Substance: OCTREOTIDE ACETATE
     Dosage: 20 MG, QMO
     Route: 030
     Dates: start: 20190819
  5. SANDOSTATIN LAR DEPOT [Suspect]
     Active Substance: OCTREOTIDE ACETATE
     Dosage: 40 MG, QMO
     Route: 030
     Dates: start: 20211013
  6. ASPIRIN [Suspect]
     Active Substance: ASPIRIN
     Indication: Headache
     Dosage: 500 MG, UNK
     Route: 048
     Dates: start: 20170919
  7. VITAMINS [Suspect]
     Active Substance: VITAMINS
     Indication: Product used for unknown indication
     Dosage: UNK
     Route: 065
  8. LEVOTHYROXINE [Suspect]
     Active Substance: LEVOTHYROXINE
     Indication: Thyroid disorder
     Dosage: 1 DF, QD
     Route: 065
  9. LEVOTHYROXINE [Suspect]
     Active Substance: LEVOTHYROXINE
     Indication: Hypothyroidism
  10. CABERGOLINE [Suspect]
     Active Substance: CABERGOLINE
     Indication: Product used for unknown indication
     Dosage: UNK
     Route: 065
  11. ACETAMINOPHEN [Suspect]
     Active Substance: ACETAMINOPHEN
     Indication: Headache
     Dosage: 500 MG, TID
     Route: 048
  12. ACETAMINOPHEN [Suspect]
     Active Substance: ACETAMINOPHEN
     Indication: Dizziness
     Dosage: 500 MG, PRN
     Route: 048
     Dates: start: 20170919
  13. ACETAMINOPHEN [Suspect]
     Active Substance: ACETAMINOPHEN
     Dosage: 500 MG, TID
     Route: 048
     Dates: start: 20180313

REACTIONS (32)
  - Pituitary tumour [Unknown]
  - Cardiomegaly [Unknown]
  - Immunodeficiency [Unknown]
  - Bladder disorder [Unknown]
  - Dizziness [Recovered/Resolved]
  - Hypothyroidism [Not Recovered/Not Resolved]
  - Fatigue [Recovered/Resolved]
  - Dizziness [Recovered/Resolved]
  - Fatigue [Recovered/Resolved]
  - Fatigue [Recovered/Resolved]
  - Weight decreased [Unknown]
  - Influenza [Recovered/Resolved]
  - Malaise [Not Recovered/Not Resolved]
  - Amenorrhoea [Not Recovered/Not Resolved]
  - Aphonia [Recovering/Resolving]
  - Ear pain [Not Recovered/Not Resolved]
  - Tinnitus [Not Recovered/Not Resolved]
  - Anaemia [Unknown]
  - Depression [Not Recovered/Not Resolved]
  - Anxiety [Recovered/Resolved]
  - Hyperphagia [Unknown]
  - Arthralgia [Recovered/Resolved]
  - Somnolence [Recovered/Resolved]
  - Influenza [Recovering/Resolving]
  - Weight increased [Unknown]
  - Decreased appetite [Recovered/Resolved]
  - Headache [Recovering/Resolving]
  - Abdominal pain upper [Not Recovered/Not Resolved]
  - Vomiting [Not Recovered/Not Resolved]
  - Injection site abscess [Recovering/Resolving]
  - Application site pain [Recovered/Resolved]
  - Fear [Not Recovered/Not Resolved]

NARRATIVE: CASE EVENT DATE: 20170919
